FAERS Safety Report 4721135-X (Version None)
Quarter: 2005Q3

REPORT INFORMATION
  Report Type: 
  Country: None (occurrence: None)
  Receive Date: 20050719
  Receipt Date: 20040924
  Transmission Date: 20060218
  Serious: Yes (Life-Threatening, Other)
  Sender: FDA-Public Use
  Company Number: 2004235561US

PATIENT

DRUGS (2)
  1. CELEBREX [Suspect]
     Dosage: 200 MG
  2. ACE INHIBITOR [Concomitant]

REACTIONS (2)
  - RENAL FAILURE ACUTE [None]
  - URINE OUTPUT DECREASED [None]
